FAERS Safety Report 9098926 (Version 1)
Quarter: 2013Q1

REPORT INFORMATION
  Report Type: Spontaneous
  Country: FR (occurrence: FR)
  Receive Date: 20130214
  Receipt Date: 20130214
  Transmission Date: 20140127
  Serious: Yes (Hospitalization)
  Sender: FDA-Public Use
  Company Number: PHHY2013FR014073

PATIENT
  Age: 60 Year
  Sex: Female

DRUGS (11)
  1. AMOXICILLIN+CLAVULANATE [Suspect]
     Route: 042
     Dates: start: 20120905, end: 20120907
  2. ORBENINE [Suspect]
     Route: 042
     Dates: start: 20120907, end: 20120916
  3. GENTAMICINE [Suspect]
     Route: 042
     Dates: start: 20120907, end: 20120908
  4. METRONIDAZOLE [Suspect]
     Route: 042
     Dates: start: 20120907, end: 20120916
  5. VANCOMYCINE [Suspect]
     Route: 042
     Dates: start: 20120907, end: 20120908
  6. DEPAKOTE [Concomitant]
  7. TERCIAN [Concomitant]
  8. ANAFRANIL [Concomitant]
  9. ATARAX//HYDROXYZINE [Concomitant]
  10. SULFARLEM [Concomitant]
  11. FLUVOXAMINE [Concomitant]

REACTIONS (3)
  - Renal tubular necrosis [Recovered/Resolved]
  - Renal failure acute [Recovered/Resolved]
  - Anuria [Recovered/Resolved]
